FAERS Safety Report 13089340 (Version 2)
Quarter: 2017Q1

REPORT INFORMATION
  Report Type: Spontaneous
  Country: JP (occurrence: JP)
  Receive Date: 20170105
  Receipt Date: 20170223
  Transmission Date: 20170428
  Serious: Yes (Disabling, Other)
  Sender: FDA-Public Use
  Company Number: JP-PFIZER INC-2017004240

PATIENT
  Age: 62 Year
  Sex: Male

DRUGS (13)
  1. LYRICA [Suspect]
     Active Substance: PREGABALIN
     Dosage: 50 MG, 2X/DAY
     Route: 048
     Dates: start: 20141004
  2. AZEPTIN [Concomitant]
     Active Substance: AZELASTINE HYDROCHLORIDE
     Dosage: UNK
     Dates: start: 20140917
  3. ADALAT [Concomitant]
     Active Substance: NIFEDIPINE
  4. HOMOCLOMIN [Concomitant]
     Active Substance: HOMOCHLORCYCLIZINE DIHYDROCHLORIDE
     Dosage: UNK
     Dates: start: 20140917
  5. METGLUCO [Concomitant]
     Active Substance: METFORMIN HYDROCHLORIDE
  6. AIMIX [Concomitant]
     Active Substance: AMLODIPINE BESYLATE\IRBESARTAN
  7. LYRICA [Suspect]
     Active Substance: PREGABALIN
     Indication: PRURITUS
     Dosage: 25 MG, 2X/DAY
     Route: 048
     Dates: start: 20140909
  8. LYRICA [Suspect]
     Active Substance: PREGABALIN
     Indication: ECZEMA
     Dosage: 25 MG, 3X/DAY
     Route: 048
     Dates: start: 20140924
  9. LYRICA [Suspect]
     Active Substance: PREGABALIN
     Dosage: 50 MG, 3X/DAY
     Route: 048
     Dates: start: 20141031, end: 20141214
  10. DRENISON [Concomitant]
     Active Substance: FLURANDRENOLIDE
  11. VOGLIBOSE [Concomitant]
     Active Substance: VOGLIBOSE
  12. NESINA [Concomitant]
     Active Substance: ALOGLIPTIN BENZOATE
  13. DAONIL [Concomitant]
     Active Substance: GLYBURIDE
     Dosage: UNK
     Dates: start: 20140917

REACTIONS (3)
  - Oedema peripheral [Not Recovered/Not Resolved]
  - Product use issue [Unknown]
  - Chronic kidney disease [Not Recovered/Not Resolved]

NARRATIVE: CASE EVENT DATE: 20140909
